FAERS Safety Report 10917164 (Version 2)
Quarter: 2015Q2

REPORT INFORMATION
  Report Type: Spontaneous
  Country: US (occurrence: US)
  Receive Date: 20150316
  Receipt Date: 20150524
  Transmission Date: 20150821
  Serious: No
  Sender: FDA-Public Use
  Company Number: US-JNJFOC-20131005250

PATIENT
  Sex: Male
  Weight: 72.58 kg

DRUGS (3)
  1. PREDNISONE. [Concomitant]
     Active Substance: PREDNISONE
     Indication: PROSTATE CANCER
     Route: 048
     Dates: start: 20121125, end: 20130910
  2. COUMADIN [Concomitant]
     Active Substance: WARFARIN SODIUM
     Indication: HEART RATE IRREGULAR
     Dosage: ONCE DAILY EXCEPT TAKE 2 1/5 MG ON??MONDAY
     Route: 048
     Dates: start: 20121125
  3. ZYTIGA [Suspect]
     Active Substance: ABIRATERONE ACETATE
     Indication: PROSTATE CANCER
     Dosage: 250 MG X FOUR TABLETS ONCE DAILY
     Route: 048
     Dates: start: 20121125, end: 20130910

REACTIONS (4)
  - Hearing impaired [Not Recovered/Not Resolved]
  - Dizziness [Recovering/Resolving]
  - Insomnia [Not Recovered/Not Resolved]
  - Adverse drug reaction [Unknown]

NARRATIVE: CASE EVENT DATE: 2012
